FAERS Safety Report 4603770-2 (Version None)
Quarter: 2005Q1

REPORT INFORMATION
  Report Type: 
  Country: None (occurrence: None)
  Receive Date: 20050308
  Receipt Date: 20050308
  Transmission Date: 20050727
  Serious: Yes (Hospitalization)
  Sender: FDA-Public Use
  Company Number: None

PATIENT
  Sex: Male

DRUGS (1)
  1. WARFARIN [Suspect]
     Indication: ANTICOAGULANT THERAPY
     Dosage: 2 MG DAILY ORAL
     Route: 048

REACTIONS (9)
  - CARDIAC PACEMAKER INSERTION [None]
  - CARDIAC TAMPONADE [None]
  - CARDIAC VENTRICULAR DISORDER [None]
  - DYSPNOEA [None]
  - INTERNATIONAL NORMALISED RATIO INCREASED [None]
  - ORAL INTAKE REDUCED [None]
  - PERICARDIAL EFFUSION [None]
  - PERICARDITIS [None]
  - POST PROCEDURAL COMPLICATION [None]
